FAERS Safety Report 15775819 (Version 1)
Quarter: 2018Q4

REPORT INFORMATION
  Report Type: Spontaneous
  Country: CN (occurrence: CN)
  Receive Date: 20181231
  Receipt Date: 20181231
  Transmission Date: 20190205
  Serious: Yes (Other)
  Sender: FDA-Public Use
  Company Number: CN-ROCHE-2237150

PATIENT
  Sex: Male

DRUGS (8)
  1. AVASTIN [Suspect]
     Active Substance: BEVACIZUMAB
     Dosage: IVGTT ;Q42D
     Route: 042
     Dates: start: 20170717
  2. XELODA [Suspect]
     Active Substance: CAPECITABINE
     Indication: ADENOCARCINOMA
     Dosage: BID,D1 14Q21D ,3 TABLETS
     Route: 048
     Dates: start: 20161128
  3. FLUOROURACIL. [Concomitant]
     Active Substance: FLUOROURACIL
     Indication: ADENOCARCINOMA
     Dosage: BOLUS ,ON D1
     Route: 065
     Dates: start: 20170123
  4. XELODA [Suspect]
     Active Substance: CAPECITABINE
     Dosage: BID,D1-8,3 TABLETS
     Route: 048
     Dates: start: 20170109
  5. IRINOTECAN [Concomitant]
     Active Substance: IRINOTECAN
     Indication: ADENOCARCINOMA
     Dosage: ON D1
     Route: 065
     Dates: start: 20170123
  6. AVASTIN [Suspect]
     Active Substance: BEVACIZUMAB
     Indication: ADENOCARCINOMA
     Dosage: IVGTT
     Route: 042
     Dates: start: 20170123
  7. OXALIPLATIN. [Concomitant]
     Active Substance: OXALIPLATIN
     Indication: ADENOCARCINOMA
     Dosage: Q21D
     Route: 065
     Dates: start: 20161128
  8. FLUOROURACIL. [Concomitant]
     Active Substance: FLUOROURACIL
     Dosage: 46-48H,
     Route: 065

REACTIONS (6)
  - Bone marrow failure [Unknown]
  - Diarrhoea [Unknown]
  - Disease progression [Unknown]
  - Gastrointestinal disorder [Unknown]
  - Alopecia [Unknown]
  - Herpes zoster [Unknown]
